FAERS Safety Report 19020987 (Version 1)
Quarter: 2021Q1

REPORT INFORMATION
  Report Type: Other
  Country: US (occurrence: US)
  Receive Date: 20210317
  Receipt Date: 20210317
  Transmission Date: 20210420
  Serious: Yes (Other)
  Sender: FDA-Public Use
  Company Number: US-GLENMARK PHARMACEUTICALS-2020GMK046173

PATIENT

DRUGS (1)
  1. LITHIUM CARBONATE. [Suspect]
     Active Substance: LITHIUM CARBONATE
     Indication: DEPRESSION
     Dosage: UNK; START DATE: FOR SOME YEARS (UNSPECIFIED)
     Route: 065

REACTIONS (7)
  - Depressed level of consciousness [Recovered/Resolved]
  - Cognitive disorder [Recovered/Resolved]
  - Pruritus [Recovered/Resolved]
  - Drug ineffective [Unknown]
  - Product substitution issue [Unknown]
  - Malaise [Recovered/Resolved]
  - Product formulation issue [Unknown]
